FAERS Safety Report 18120082 (Version 1)
Quarter: 2020Q3

REPORT INFORMATION
  Report Type: Report from Study
  Country: CA (occurrence: CA)
  Receive Date: 20200806
  Receipt Date: 20200806
  Transmission Date: 20201103
  Serious: Yes (Hospitalization, Other)
  Sender: FDA-Public Use
  Company Number: NVSC2019CA087363

PATIENT
  Age: 50 Year
  Sex: Female

DRUGS (6)
  1. METOCLOPRAMIDE. [Suspect]
     Active Substance: METOCLOPRAMIDE
     Indication: NAUSEA
     Dosage: UNK, UNKNOWN
     Route: 048
  2. QUETIAPINE FUMARATE. [Suspect]
     Active Substance: QUETIAPINE FUMARATE
     Dosage: 40 MG, QD
     Route: 048
  3. GLEEVEC [Suspect]
     Active Substance: IMATINIB MESYLATE
     Dosage: 800 MG, UNKNOWN
     Route: 065
  4. GLEEVEC [Suspect]
     Active Substance: IMATINIB MESYLATE
     Dosage: 400 MG, QD
     Route: 048
  5. QUETIAPINE FUMARATE. [Suspect]
     Active Substance: QUETIAPINE FUMARATE
     Indication: DEPRESSION
     Dosage: UNK UNK, UNKNOWN
     Route: 065
     Dates: start: 2017
  6. GLEEVEC [Suspect]
     Active Substance: IMATINIB MESYLATE
     Indication: GASTROINTESTINAL STROMAL TUMOUR
     Dosage: 400 MG, QD
     Route: 048
     Dates: start: 20190301

REACTIONS (12)
  - Gastrointestinal stoma necrosis [Unknown]
  - Cytogenetic analysis abnormal [Unknown]
  - Abdominal mass [Unknown]
  - Abdominal pain lower [Unknown]
  - Abdominal distension [Unknown]
  - Drug intolerance [Unknown]
  - Intestinal cyst [Unknown]
  - Gastric ulcer [Unknown]
  - Jejunal ulcer [Unknown]
  - Uterine leiomyoma [Unknown]
  - Gastrointestinal stromal tumour [Unknown]
  - Polyp [Unknown]

NARRATIVE: CASE EVENT DATE: 2018
